FAERS Safety Report 8447634-5 (Version None)
Quarter: 2012Q2

REPORT INFORMATION
  Report Type: 
  Country: None (occurrence: None)
  Receive Date: 20120619
  Receipt Date: 20120614
  Transmission Date: 20120825
  Serious: Yes (Hospitalization)
  Sender: FDA-Public Use
  Company Number: JP-EISAI INC-E2020-10897-SPO-JP

PATIENT
  Age: 86 Year
  Sex: Male

DRUGS (3)
  1. ARICEPT [Suspect]
     Route: 048
     Dates: start: 20110525, end: 20120607
  2. ISOSORBIDE MONONITRATE [Concomitant]
     Route: 048
     Dates: start: 20110525
  3. NORVASC [Concomitant]
     Indication: HYPERTENSION
     Route: 048
     Dates: start: 20110525

REACTIONS (1)
  - ALTERED STATE OF CONSCIOUSNESS [None]
